FAERS Safety Report 4608886-2 (Version None)
Quarter: 2005Q1

REPORT INFORMATION
  Report Type: 
  Country: None (occurrence: None)
  Receive Date: 20050311
  Receipt Date: 20050228
  Transmission Date: 20050727
  Serious: Yes (Hospitalization, Other)
  Sender: FDA-Public Use
  Company Number: 2004110541

PATIENT
  Age: 77 Year
  Sex: Male
  Weight: 45 kg

DRUGS (11)
  1. SULPERAZON (SULBACTAM, CEFOPERAZONE) [Suspect]
     Indication: CHOLECYSTITIS
     Dosage: 2 GRAM (1 GRAM, 2 IN 1 D), INTRAVENOUS
     Route: 042
     Dates: start: 20041118, end: 20041124
  2. NORVASC [Suspect]
     Indication: HYPERTENSION
     Dosage: 5 MG (5 MG, 1 IN 1 D), ORAL
     Route: 048
     Dates: start: 20041102, end: 20041122
  3. HALOPERIDOL [Suspect]
     Indication: ILL-DEFINED DISORDER
     Dosage: 1 MG (1 MG, 1 IN 1 D), ORAL
     Route: 048
     Dates: start: 20041118, end: 20041129
  4. TIAPRIDE HYDROCHLORIDE (TIAPRIDE HYDROCHLORIDE) [Concomitant]
  5. BUFFERIN [Concomitant]
  6. MEXILETINE HYDROCHLORIDE [Concomitant]
  7. POLAPREZINC (POLAPREZINC) [Concomitant]
  8. TEMOCAPRIL HYDROCHLORIDE (TEMOCAPRIL HYDROCHLORIDE) [Concomitant]
  9. MAGNESIUM OXIDE (MAGNESIUM OXIDE) [Concomitant]
  10. FAMOTIDINE [Concomitant]
  11. REBAMIPIDE (REBAMIPIDE) [Concomitant]

REACTIONS (5)
  - CHOLECYSTITIS [None]
  - GASTRIC ULCER [None]
  - HYPERTHYROIDISM [None]
  - PNEUMONIA [None]
  - SYPHILIS [None]
